FAERS Safety Report 4791167-4 (Version None)
Quarter: 2005Q4

REPORT INFORMATION
  Report Type: 
  Country: None (occurrence: None)
  Receive Date: 20051005
  Receipt Date: 20050916
  Transmission Date: 20060501
  Serious: No
  Sender: FDA-Public Use
  Company Number: EWC050744867

PATIENT
  Age: 15 Year
  Sex: Male
  Weight: 60 kg

DRUGS (1)
  1. STRATTERA [Suspect]
     Indication: ATTENTION DEFICIT/HYPERACTIVITY DISORDER
     Dosage: 40 MG/1 DAY
     Dates: start: 20050602, end: 20050702

REACTIONS (8)
  - AGGRESSION [None]
  - ANGER [None]
  - ANOREXIA [None]
  - CONDITION AGGRAVATED [None]
  - FEELING ABNORMAL [None]
  - GASTRIC DISORDER [None]
  - HYPERHIDROSIS [None]
  - SOMNOLENCE [None]
